FAERS Safety Report 7788669-5 (Version None)
Quarter: 2011Q3

REPORT INFORMATION
  Report Type: 
  Country: None (occurrence: None)
  Receive Date: 20110928
  Receipt Date: 20110914
  Transmission Date: 20111222
  Serious: Yes (Death, Hospitalization)
  Sender: FDA-Public Use
  Company Number: AU-ACCORD-008525

PATIENT
  Age: 44 Year
  Sex: Male

DRUGS (6)
  1. CYTARABINE [Suspect]
     Indication: LEUKAEMIA
  2. VANCOMYCIN [Suspect]
     Indication: PRODUCT USED FOR UNKNOWN INDICATION
  3. ETOPOSIDE [Suspect]
     Indication: LEUKAEMIA
  4. IDARUBICIN HCL [Suspect]
     Indication: LEUKAEMIA
  5. AMPHOTERICIN B [Suspect]
     Indication: PRODUCT USED FOR UNKNOWN INDICATION
  6. MEROPENEM [Suspect]
     Indication: PRODUCT USED FOR UNKNOWN INDICATION

REACTIONS (7)
  - PANCYTOPENIA [None]
  - THROMBOCYTOPENIA [None]
  - RESPIRATORY FAILURE [None]
  - MULTI-ORGAN FAILURE [None]
  - SEPTIC SHOCK [None]
  - TOXIC SHOCK SYNDROME STAPHYLOCOCCAL [None]
  - RENAL FAILURE ACUTE [None]
